FAERS Safety Report 7774422-5 (Version None)
Quarter: 2011Q3

REPORT INFORMATION
  Report Type: 
  Country: None (occurrence: None)
  Receive Date: 20110923
  Receipt Date: 20110920
  Transmission Date: 20111222
  Serious: Yes (Hospitalization)
  Sender: FDA-Public Use
  Company Number: US-SANOFI-AVENTIS-2011SA055759

PATIENT
  Age: 87 Year
  Sex: Female
  Weight: 77.1 kg

DRUGS (4)
  1. VICODIN [Suspect]
     Indication: PAIN
     Dosage: 5/500 EVERY 4-6 HOURS
     Route: 048
     Dates: start: 20050414
  2. FLEXERIL [Suspect]
     Indication: BACK PAIN
     Route: 048
     Dates: start: 20110524, end: 20110531
  3. SUNITINIB MALATE [Suspect]
     Indication: METASTATIC RENAL CELL CARCINOMA
     Dosage: 25 MG, 1X/DAY FOR 28 DAYS, EVERY 6 WEEKS
     Route: 048
     Dates: start: 20080219, end: 20110518
  4. AMBIEN [Suspect]
     Route: 048
     Dates: start: 20080101

REACTIONS (3)
  - VIITH NERVE PARALYSIS [None]
  - DYSARTHRIA [None]
  - HYPERTENSIVE EMERGENCY [None]
